FAERS Safety Report 15800617 (Version 1)
Quarter: 2019Q1

REPORT INFORMATION
  Report Type: Spontaneous
  Country: US (occurrence: US)
  Receive Date: 20190108
  Receipt Date: 20190108
  Transmission Date: 20190417
  Serious: Yes (Other)
  Sender: FDA-Public Use
  Company Number: US-BRISTOL-MYERS SQUIBB COMPANY-BMS-2019-001026

PATIENT
  Sex: Male

DRUGS (1)
  1. COUMADINE [Suspect]
     Active Substance: WARFARIN SODIUM
     Indication: TRANSIENT ISCHAEMIC ATTACK
     Dosage: 5 MG,DAILY
     Route: 065
     Dates: start: 1994

REACTIONS (4)
  - Cardiac disorder [Unknown]
  - Hypoacusis [Unknown]
  - Skin laceration [Unknown]
  - Wound haemorrhage [Unknown]
